FAERS Safety Report 8844948 (Version 1)
Quarter: 2012Q4

REPORT INFORMATION
  Report Type: 
  Country: AU (occurrence: AU)
  Receive Date: 20121017
  Receipt Date: 20121017
  Transmission Date: 20130627
  Serious: Yes (Other)
  Sender: FDA-Public Use
  Company Number: PHHY2012AU090244

PATIENT

DRUGS (1)
  1. GILENYA [Suspect]

REACTIONS (3)
  - Multiple sclerosis relapse [Unknown]
  - Demyelination [Unknown]
  - Central nervous system lesion [Unknown]
